FAERS Safety Report 22240098 (Version 1)
Quarter: 2023Q2

REPORT INFORMATION
  Report Type: Spontaneous
  Country: US (occurrence: None)
  Receive Date: 20230419
  Receipt Date: 20230419
  Transmission Date: 20230721
  Serious: Yes (Other)
  Sender: FDA-Public Use
  Company Number: None

PATIENT
  Sex: Male

DRUGS (10)
  1. TACROLIMUS [Suspect]
     Active Substance: TACROLIMUS
     Indication: Lung transplant
     Dosage: FREQUENCY : EVERY 12 HOURS;?
     Route: 048
     Dates: start: 20220812
  2. TACROLIMUS [Suspect]
     Active Substance: TACROLIMUS
     Indication: Post procedural infection
     Dosage: FREQUENCY : EVERY 12 HOURS;?
     Route: 048
  3. FLUOXETINE [Concomitant]
  4. NIVESTYM [Concomitant]
  5. PRVASTATIN [Concomitant]
  6. PREDNISONE [Concomitant]
  7. PROTONIX [Concomitant]
     Active Substance: PANTOPRAZOLE SODIUM
  8. SOTALOLO HCL [Concomitant]
  9. VALCYTE [Concomitant]
     Active Substance: VALGANCICLOVIR HYDROCHLORIDE
  10. WARFARIN [Concomitant]
     Active Substance: WARFARIN

REACTIONS (2)
  - Blood potassium decreased [None]
  - Blood magnesium decreased [None]
